FAERS Safety Report 8136960-5 (Version None)
Quarter: 2012Q1

REPORT INFORMATION
  Report Type: 
  Country: None (occurrence: None)
  Receive Date: 20120214
  Receipt Date: 20120130
  Transmission Date: 20120608
  Serious: Yes (Other)
  Sender: FDA-Public Use
  Company Number: DE-ROCHE-1038301

PATIENT
  Age: 84 Year
  Sex: Female

DRUGS (2)
  1. ALTEPLASE [Suspect]
     Indication: AGE-RELATED MACULAR DEGENERATION
  2. AVASTIN [Suspect]
     Indication: AGE-RELATED MACULAR DEGENERATION

REACTIONS (2)
  - VISUAL ACUITY REDUCED [None]
  - RETINAL PIGMENT EPITHELIAL TEAR [None]
